FAERS Safety Report 7321796-5 (Version None)
Quarter: 2011Q1

REPORT INFORMATION
  Report Type: 
  Country: None (occurrence: None)
  Receive Date: 20110228
  Receipt Date: 20110222
  Transmission Date: 20110831
  Serious: Yes (Death)
  Sender: FDA-Public Use
  Company Number: JP-PFIZER INC-2010098483

PATIENT
  Age: 68 Year
  Sex: Male

DRUGS (31)
  1. NOVASTAN [Suspect]
     Indication: HEPARIN-INDUCED THROMBOCYTOPENIA
     Dosage: 0.2 MCG/KG/MIN
     Route: 041
     Dates: start: 20100523, end: 20100523
  2. MIYA BM [Concomitant]
     Indication: PROPHYLAXIS
     Dosage: 3 G, UNK
     Route: 048
     Dates: start: 20100513, end: 20100527
  3. HEPARIN SODIUM [Concomitant]
     Dosage: UNK
     Route: 051
     Dates: start: 20100512
  4. PROPOFOL [Concomitant]
     Indication: SEDATION
     Dosage: 150 MG, UNK
     Route: 042
     Dates: start: 20100512, end: 20100527
  5. MAGNESIUM SULFATE [Concomitant]
     Indication: PROPHYLAXIS
     Dosage: 3 AMPULES/DAY
     Route: 042
     Dates: start: 20100512, end: 20100527
  6. ANPLAG [Concomitant]
     Indication: PROPHYLAXIS
     Dosage: 300 MG, UNK
     Route: 048
     Dates: start: 20100513, end: 20100527
  7. ASPIRIN [Concomitant]
     Indication: PROPHYLAXIS
     Dosage: 100 MG, UNK
     Route: 048
     Dates: start: 20100513, end: 20100527
  8. LASIX [Concomitant]
     Dosage: 40 MG, UNK
     Route: 048
     Dates: start: 20100513
  9. MAGNESIUM OXIDE [Concomitant]
     Indication: PROPHYLAXIS
     Dosage: 1.5 G, UNK
     Route: 048
     Dates: start: 20100513, end: 20100527
  10. GLYCERYL TRINITRATE [Concomitant]
     Indication: PROPHYLAXIS
     Dosage: 50 MG, UNK
     Route: 042
     Dates: start: 20100512, end: 20100527
  11. ELASPOL [Concomitant]
     Indication: PROPHYLAXIS
     Dosage: 200 MG, UNK
     Route: 042
     Dates: start: 20100512, end: 20100527
  12. SAXIZON [Concomitant]
     Indication: PROPHYLAXIS
     Dosage: 300 MG, UNK
     Route: 042
     Dates: start: 20100512, end: 20100527
  13. SELBEX [Concomitant]
     Indication: PROPHYLAXIS
     Dosage: 3 G, UNK
     Route: 048
     Dates: start: 20100513, end: 20100527
  14. MAINTATE [Concomitant]
     Indication: PROPHYLAXIS
     Dosage: 2.5 MG, UNK
     Route: 048
     Dates: start: 20100513, end: 20100527
  15. DAIKENTYUTO [Concomitant]
     Indication: ILEUS
     Dosage: 7.5 G, UNK
     Route: 048
     Dates: start: 20100513, end: 20100527
  16. VERAPAMIL HCL [Concomitant]
     Indication: PROPHYLAXIS
     Dosage: 80 MG, UNK
     Route: 048
     Dates: start: 20100513, end: 20100527
  17. LANDIOLOL HYDROCHLORIDE [Concomitant]
     Indication: PROPHYLAXIS
     Dosage: 150 MG, UNK
     Route: 042
     Dates: start: 20100512, end: 20100527
  18. DOPAMINE HYDROCHLORIDE [Concomitant]
     Indication: PROPHYLAXIS
     Dosage: 125 MG, UNK
     Route: 042
     Dates: start: 20100513, end: 20100527
  19. FLAVITAN [Concomitant]
     Indication: PROPHYLAXIS
     Dosage: 1 AMPULE/DAY
     Route: 042
     Dates: start: 20100512, end: 20100527
  20. PANTOL [Concomitant]
     Indication: PROPHYLAXIS
     Dosage: 1500 MG, UNK
     Route: 042
     Dates: start: 20100512, end: 20100527
  21. WARFARIN [Concomitant]
     Dosage: 3 MG, UNK
     Route: 048
     Dates: start: 20100513, end: 20100521
  22. SIGMART [Concomitant]
     Indication: PROPHYLAXIS
     Dosage: 15 MG, UNK
     Route: 048
     Dates: start: 20100513
  23. IMIDAPRIL HYDROCHLORIDE [Concomitant]
     Indication: PROPHYLAXIS
     Dosage: 5 MG, UNK
     Route: 048
     Dates: start: 20100513, end: 20100527
  24. ANCARON [Concomitant]
     Indication: PROPHYLAXIS
     Dosage: 300 MG, UNK
     Route: 048
     Dates: start: 20100513, end: 20100527
  25. DOBUTREX [Concomitant]
     Indication: PROPHYLAXIS
     Dosage: 125 MG, UNK
     Route: 042
     Dates: start: 20100512, end: 20100527
  26. NOREPINEPHRINE [Concomitant]
     Indication: PROPHYLAXIS
     Dosage: 2 MG, UNK
     Route: 042
     Dates: start: 20100512, end: 20100527
  27. CARPERITIDE [Concomitant]
     Indication: PROPHYLAXIS
     Dosage: 2500 MCG
     Route: 042
     Dates: start: 20100512, end: 20100527
  28. FENTANYL [Concomitant]
     Indication: SEDATION
     Dosage: 2 MG, UNK
     Route: 042
     Dates: start: 20100512, end: 20100527
  29. DILTIAZEM HYDROCHLORIDE [Concomitant]
     Indication: PROPHYLAXIS
     Dosage: 90 MG, UNK
     Route: 048
     Dates: start: 20100513, end: 20100527
  30. ENTERONON R [Concomitant]
     Indication: PROPHYLAXIS
     Dosage: 3 G, UNK
     Route: 048
     Dates: start: 20100513, end: 20100527
  31. HUMULIN R [Concomitant]
     Indication: PROPHYLAXIS
     Dosage: 50 IU, UNK
     Route: 042
     Dates: start: 20100513, end: 20100527

REACTIONS (2)
  - INTESTINAL ISCHAEMIA [None]
  - COAGULATION TIME PROLONGED [None]
